FAERS Safety Report 17228767 (Version 6)
Quarter: 2020Q4

REPORT INFORMATION
  Report Type: Report from Study
  Country: None (occurrence: NL)
  Receive Date: 20200103
  Receipt Date: 20201123
  Transmission Date: 20210113
  Serious: Yes (Other)
  Sender: FDA-Public Use
  Company Number: NL-ABBVIE-19S-114-2825853-00

PATIENT
  Age: 69 Year
  Sex: Female
  Weight: 50 kg

DRUGS (11)
  1. PEGASYS [Concomitant]
     Active Substance: PEGINTERFERON ALFA-2A
     Indication: PRODUCT USED FOR UNKNOWN INDICATION
  2. MACROGOL [Concomitant]
     Active Substance: POLYETHYLENE GLYCOLS
     Indication: ABNORMAL FAECES
  3. DUODOPA [Suspect]
     Active Substance: CARBIDOPA\LEVODOPA
     Route: 050
  4. MADOPAR [Concomitant]
     Active Substance: BENSERAZIDE HYDROCHLORIDE\LEVODOPA
     Indication: PARKINSON^S DISEASE
  5. DUODOPA [Suspect]
     Active Substance: CARBIDOPA\LEVODOPA
     Indication: PARKINSON^S DISEASE
     Dosage: MD 3.6, CD 1.1, ED 2.0?REMAINS AT 16 HOURS
     Route: 050
     Dates: start: 20171005
  6. DUODOPA [Suspect]
     Active Substance: CARBIDOPA\LEVODOPA
     Dosage: MD 3.6, CD 1.2, ED 2.0?DOSE INCREASE
     Route: 050
  7. LEVODOPA [Concomitant]
     Active Substance: LEVODOPA
     Indication: PRODUCT USED FOR UNKNOWN INDICATION
     Dosage: FOR THE NIGHT
  8. ROPINIROLE. [Concomitant]
     Active Substance: ROPINIROLE
     Indication: PRODUCT USED FOR UNKNOWN INDICATION
     Dosage: DURING THE DAY
  9. DUODOPA [Suspect]
     Active Substance: CARBIDOPA\LEVODOPA
     Dosage: MD: 3.4., CD: 1.1, ED: 2.0; 16 HOUR ADMINISTRATION?REMAINS AT 16 HOURS
     Route: 050
  10. SYMMETREL [Concomitant]
     Active Substance: AMANTADINE HYDROCHLORIDE
     Indication: PRODUCT USED FOR UNKNOWN INDICATION
  11. SILVER NITRATE. [Suspect]
     Active Substance: SILVER NITRATE
     Indication: FIBROMA
     Route: 065

REACTIONS (39)
  - Pollakiuria [Not Recovered/Not Resolved]
  - Device difficult to use [Unknown]
  - Freezing phenomenon [Not Recovered/Not Resolved]
  - Infection [Recovered/Resolved]
  - Peripheral coldness [Not Recovered/Not Resolved]
  - Medical device site burn [Not Recovered/Not Resolved]
  - Bradykinesia [Not Recovered/Not Resolved]
  - Sleep disorder [Not Recovered/Not Resolved]
  - Fine motor skill dysfunction [Not Recovered/Not Resolved]
  - Vulval abscess [Not Recovered/Not Resolved]
  - Fibroma [Not Recovered/Not Resolved]
  - Muscle spasms [Not Recovered/Not Resolved]
  - Decreased appetite [Recovered/Resolved]
  - Dry mouth [Not Recovered/Not Resolved]
  - Hallucination [Not Recovered/Not Resolved]
  - Insomnia [Recovered/Resolved]
  - Dyskinesia [Recovered/Resolved]
  - Constipation [Recovered/Resolved]
  - Dental implantation [Unknown]
  - Tooth extraction [Unknown]
  - Hypophagia [Recovered/Resolved]
  - Muscle rigidity [Not Recovered/Not Resolved]
  - Dental implantation [Unknown]
  - Memory impairment [Unknown]
  - Stoma site discharge [Not Recovered/Not Resolved]
  - On and off phenomenon [Recovered/Resolved]
  - Feeling abnormal [Not Recovered/Not Resolved]
  - Abnormal faeces [Recovered/Resolved]
  - Implant site pain [Not Recovered/Not Resolved]
  - Gait disturbance [Not Recovered/Not Resolved]
  - Faeces hard [Recovered/Resolved]
  - Therapeutic product effect delayed [Unknown]
  - Stoma site erythema [Recovered/Resolved]
  - On and off phenomenon [Unknown]
  - Pain in extremity [Not Recovered/Not Resolved]
  - Device issue [Recovered/Resolved]
  - Weight decreased [Recovered/Resolved]
  - Hyperkinesia [Recovering/Resolving]
  - Dyskinesia [Not Recovered/Not Resolved]

NARRATIVE: CASE EVENT DATE: 2017
